FAERS Safety Report 5254256-6 (Version None)
Quarter: 2007Q1

REPORT INFORMATION
  Report Type: 
  Country: None (occurrence: None)
  Receive Date: 20070302
  Receipt Date: 20070228
  Transmission Date: 20070707
  Serious: Yes (Death, Life-Threatening, Other)
  Sender: FDA-Public Use
  Company Number: US-GLAXOSMITHKLINE-A0641356A

PATIENT
  Sex: Female

DRUGS (3)
  1. LAMICTAL [Suspect]
     Indication: BIPOLAR DISORDER
     Route: 048
  2. TRILEPTAL [Concomitant]
  3. EFFEXOR [Concomitant]

REACTIONS (2)
  - INFLUENZA LIKE ILLNESS [None]
  - SUDDEN DEATH [None]
